FAERS Safety Report 5869918-7 (Version None)
Quarter: 2008Q3

REPORT INFORMATION
  Report Type: 
  Country: None (occurrence: None)
  Receive Date: 20080904
  Receipt Date: 20080827
  Transmission Date: 20090109
  Serious: Yes (Hospitalization, Other)
  Sender: FDA-Public Use
  Company Number: PHHY2008PH17315

PATIENT
  Sex: Male

DRUGS (4)
  1. EXFORGE [Suspect]
     Indication: HYPERTENSION
     Dosage: 1 DF, BID
     Route: 048
  2. EXFORGE [Suspect]
     Dosage: 1 DF, QD
     Route: 048
  3. FUROSEMIDE [Concomitant]
     Dosage: 1 DF, QD
  4. NICARDIPINE HYDROCHLORIDE [Concomitant]

REACTIONS (3)
  - ABDOMINAL COMPARTMENT SYNDROME [None]
  - HYPOTENSION [None]
  - SYNCOPE [None]
